FAERS Safety Report 8308390-4 (Version None)
Quarter: 2012Q1

REPORT INFORMATION
  Report Type: 
  Country: None (occurrence: None)
  Receive Date: 20120327
  Receipt Date: 20091127
  Transmission Date: 20120608
  Serious: Yes (Hospitalization)
  Sender: FDA-Public Use
  Company Number: PHEH2009US14879

PATIENT
  Age: 65 Year
  Sex: Male
  Weight: 109.8 kg

DRUGS (5)
  1. LUPRON [Concomitant]
  2. GLEEVEC [Suspect]
     Indication: CHRONIC MYELOID LEUKAEMIA
     Dosage: 400 MG, QD, ORAL
     Route: 048
  3. CIPRO [Concomitant]
  4. VICOPROFEN (HYDROCODONE, HYDROCODONE BITARTRATE, INUPROFEN) [Concomitant]
  5. CASODEX [Concomitant]

REACTIONS (2)
  - HEART RATE INCREASED [None]
  - SUPRAVENTRICULAR TACHYCARDIA [None]
